FAERS Safety Report 4520375-2 (Version None)
Quarter: 2004Q4

REPORT INFORMATION
  Report Type: 
  Country: None (occurrence: None)
  Receive Date: 20041028
  Receipt Date: 20030930
  Transmission Date: 20050328
  Serious: Yes (Other)
  Sender: FDA-Public Use
  Company Number: HQWYE951201OCT03

PATIENT
  Age: 63 Year
  Sex: Female
  Weight: 54.48 kg

DRUGS (1)
  1. PREMARIN [Suspect]
     Indication: OESTROGEN REPLACEMENT THERAPY
     Dosage: 0.625 MG DAILY, ORAL
     Route: 048
     Dates: start: 19990101, end: 20030501

REACTIONS (2)
  - CEREBROVASCULAR ACCIDENT [None]
  - DEMENTIA [None]
